FAERS Safety Report 15607537 (Version 2)
Quarter: 2018Q4

REPORT INFORMATION
  Report Type: Spontaneous
  Country: US (occurrence: US)
  Receive Date: 20181112
  Receipt Date: 20181116
  Transmission Date: 20190205
  Serious: Yes (Hospitalization, Other)
  Sender: FDA-Public Use
  Company Number: US-PFIZER INC-2018458479

PATIENT
  Age: 50 Year
  Sex: Male

DRUGS (4)
  1. FLUOROURACIL. [Suspect]
     Active Substance: FLUOROURACIL
     Indication: PANCREATIC CARCINOMA
     Dosage: UNK, CYCLIC (TWO CYCLES)
     Dates: start: 2017
  2. OXALIPLATIN. [Suspect]
     Active Substance: OXALIPLATIN
     Indication: PANCREATIC CARCINOMA
     Dosage: UNK, CYCLIC (TWO CYCLES)
     Dates: start: 2017
  3. CALCIUM FOLINATE [Suspect]
     Active Substance: LEUCOVORIN CALCIUM
     Indication: PANCREATIC CARCINOMA
     Dosage: UNK, CYCLIC (TWO CYCLES)
     Dates: start: 2017
  4. IRINOTECAN HCL [Suspect]
     Active Substance: IRINOTECAN HYDROCHLORIDE
     Indication: PANCREATIC CARCINOMA
     Dosage: UNK, CYCLIC (TWO CYCLES)
     Dates: start: 2017

REACTIONS (2)
  - Product use in unapproved indication [Unknown]
  - Nicotinic acid deficiency [Recovering/Resolving]

NARRATIVE: CASE EVENT DATE: 2017
